FAERS Safety Report 18477138 (Version 3)
Quarter: 2020Q4

REPORT INFORMATION
  Report Type: Spontaneous
  Country: CN (occurrence: CN)
  Receive Date: 20201107
  Receipt Date: 20201219
  Transmission Date: 20210114
  Serious: Yes (Other)
  Sender: FDA-Public Use
  Company Number: NVSC2020CN294723

PATIENT
  Sex: Male

DRUGS (1)
  1. DIOVAN [Suspect]
     Active Substance: VALSARTAN
     Indication: PRODUCT USED FOR UNKNOWN INDICATION
     Dosage: 1 DF, QD (80 MG)
     Route: 048
     Dates: start: 20201028

REACTIONS (3)
  - Blood pressure increased [Not Recovered/Not Resolved]
  - Poor quality product administered [Unknown]
  - Drug ineffective [Unknown]
